FAERS Safety Report 12136566 (Version 1)
Quarter: 2016Q1

REPORT INFORMATION
  Report Type: Spontaneous
  Country: KR (occurrence: KR)
  Receive Date: 20160302
  Receipt Date: 20160302
  Transmission Date: 20160526
  Serious: Yes (Hospitalization)
  Sender: FDA-Public Use
  Company Number: KR-AMGEN-KORCT2016025221

PATIENT
  Age: 55 Year
  Sex: Female
  Weight: 52.2 kg

DRUGS (43)
  1. TARGIN [Concomitant]
     Active Substance: NALOXONE HYDROCHLORIDE\OXYCODONE HYDROCHLORIDE
     Dosage: 10 MG, UNK
     Route: 048
     Dates: start: 20150116, end: 20150120
  2. MEGESTROL [Concomitant]
     Active Substance: MEGESTROL
     Dosage: 5 ML, UNK
     Route: 048
     Dates: start: 20150126, end: 20150317
  3. MACPERAN [Concomitant]
     Dosage: 15 MG, UNK
     Route: 048
     Dates: start: 20150116
  4. CELEBREX [Concomitant]
     Active Substance: CELECOXIB
     Dosage: 400 MG, UNK
     Route: 048
     Dates: start: 20150118, end: 20150213
  5. RITUXIMAB [Concomitant]
     Active Substance: RITUXIMAB
     Dosage: 562 MG, UNK
     Route: 042
     Dates: start: 20150115, end: 20150115
  6. CYCLOPHOSPHAMIDE. [Concomitant]
     Active Substance: CYCLOPHOSPHAMIDE
     Dosage: 1125 MG, UNK
     Route: 042
     Dates: start: 20150115, end: 20150115
  7. PREDNISOLONE. [Concomitant]
     Active Substance: PREDNISOLONE
     Dosage: 100 MG, UNK
     Route: 048
     Dates: start: 20150115, end: 20150116
  8. TRIDOL [Concomitant]
     Dosage: 50 MG, UNK
     Route: 042
     Dates: start: 20150123, end: 20150210
  9. CORTISOLU [Concomitant]
     Active Substance: HYDROCORTISONE SODIUM SUCCINATE
     Dosage: 500 MG, UNK
     Route: 042
     Dates: start: 20150116, end: 20150326
  10. EMEND [Concomitant]
     Active Substance: APREPITANT
     Dosage: 125 MG, UNK
     Route: 048
     Dates: start: 20150117, end: 20150325
  11. G-LASTA [Suspect]
     Active Substance: PEGFILGRASTIM
     Dosage: 6 MG, 1X/3WEEKS
     Route: 058
     Dates: start: 20150206, end: 20150206
  12. SMOFLIPID [Concomitant]
     Active Substance: FISH OIL\OLIVEOIL\SOYBEAN OIL\TRIGLYCERIDES,UNSPECIFIED LENGTH
     Dosage: 250 ML, UNK
     Route: 042
     Dates: start: 20150204, end: 20150210
  13. NORMAL SALINE [Concomitant]
     Active Substance: SODIUM CHLORIDE
     Dosage: 500 ML, UNK
     Route: 042
     Dates: start: 20150205, end: 20150304
  14. MORPHINE SULFATE. [Concomitant]
     Active Substance: MORPHINE SULFATE
     Dosage: 2 ML, UNK
     Route: 042
     Dates: start: 20150127, end: 20150131
  15. MOSAONE [Concomitant]
     Dosage: 15 MG, UNK
     Route: 048
     Dates: start: 20150213, end: 20150326
  16. CYCLOPHOSPHAMIDE. [Concomitant]
     Active Substance: CYCLOPHOSPHAMIDE
     Dosage: 845 MG, UNK
     Route: 042
     Dates: start: 20150205, end: 20150205
  17. NESP [Concomitant]
     Active Substance: DARBEPOETIN ALFA
     Dosage: 360 MG, UNK
     Route: 058
     Dates: start: 20150204, end: 20150324
  18. MAGMIL [Concomitant]
     Active Substance: MAGNESIUM HYDROXIDE
     Dosage: 1.5 G, UNK
     Route: 048
     Dates: start: 20150125, end: 20150213
  19. CURAN [Concomitant]
     Dosage: 300 MG, UNK
     Route: 048
     Dates: start: 20150116, end: 20150326
  20. RITUXIMAB [Concomitant]
     Active Substance: RITUXIMAB
     Dosage: 562 MG, UNK
     Route: 042
     Dates: start: 20150205, end: 20150205
  21. DOXORUBICIN [Concomitant]
     Active Substance: DOXORUBICIN
     Dosage: 75 MG, UNK
     Route: 042
     Dates: start: 20150115, end: 20150115
  22. DOXORUBICIN [Concomitant]
     Active Substance: DOXORUBICIN
     Dosage: 56 MG, UNK
     Route: 042
     Dates: start: 20150205, end: 20150205
  23. VINCRISTINE [Concomitant]
     Active Substance: VINCRISTINE
     Dosage: 1.75 MG, UNK
     Route: 042
     Dates: start: 20150205, end: 20150205
  24. NORPINE [Concomitant]
     Dosage: 8 MG, UNK
     Route: 042
     Dates: start: 20150122, end: 20150122
  25. NEO MEDICOUGH [Concomitant]
     Dosage: 10 MG, UNK
     Route: 048
     Dates: start: 20150204, end: 20150207
  26. XANAX [Concomitant]
     Active Substance: ALPRAZOLAM
     Dosage: 0.25 MG, UNK
     Route: 048
     Dates: start: 20150207, end: 20150326
  27. ACTIFED [Concomitant]
     Active Substance: PSEUDOEPHEDRINE HYDROCHLORIDE\TRIPROLIDINE HYDROCHLORIDE
     Dosage: 5.0 MG, UNK
     Route: 048
     Dates: start: 20150204, end: 20150207
  28. PLAKON [Concomitant]
     Dosage: 3 MG, UNK
     Route: 042
     Dates: start: 20150205, end: 20150205
  29. DEXTROSE. [Concomitant]
     Active Substance: DEXTROSE
     Dosage: 200 ML, UNK
     Route: 042
     Dates: start: 20150205, end: 20150325
  30. STILNOX [Concomitant]
     Active Substance: ZOLPIDEM TARTRATE
     Dosage: 12.5 MG, UNK
     Route: 048
     Dates: start: 20150117, end: 20150209
  31. SYNATURA [Concomitant]
     Dosage: 45 ML, UNK
     Route: 048
     Dates: start: 20150116, end: 20150119
  32. MEIACT [Concomitant]
     Active Substance: CEFDITOREN PIVOXIL
     Dosage: 300 MG, UNK
     Route: 048
     Dates: start: 20150116, end: 20150119
  33. VINCRISTINE [Concomitant]
     Active Substance: VINCRISTINE
     Dosage: 2 MG, UNK
     Route: 042
     Dates: start: 20150115, end: 20150115
  34. BUSCOPAN [Concomitant]
     Active Substance: BUTYLSCOPOLAMINE BROMIDE
     Dosage: 20 MG, UNK
     Route: 042
     Dates: start: 20150202, end: 20150202
  35. TYLENOL ER [Concomitant]
     Active Substance: ACETAMINOPHEN
     Dosage: 650 MG, UNK
     Route: 048
     Dates: start: 20150205, end: 20150325
  36. SANCUSO [Concomitant]
     Active Substance: GRANISETRON
     Dosage: 34.3 MG, UNK
     Route: 065
     Dates: start: 20150204, end: 20150324
  37. G-LASTA [Suspect]
     Active Substance: PEGFILGRASTIM
     Indication: FEBRILE NEUTROPENIA
     Dosage: 6 MG, 1X/3WEEKS
     Route: 058
     Dates: start: 20150116, end: 20150116
  38. PREDNISOLONE. [Concomitant]
     Active Substance: PREDNISOLONE
     Dosage: 100 MG, UNK
     Route: 048
     Dates: start: 20150205, end: 20150206
  39. MAXPIME [Concomitant]
     Dosage: 2 G, UNK
     Route: 042
     Dates: start: 20150122, end: 20150204
  40. DISTILLED WATER [Concomitant]
     Dosage: 500 ML, UNK
     Route: 042
     Dates: start: 20150127, end: 20150131
  41. TANTUM                             /00052302/ [Concomitant]
     Dosage: 200 ML, UNK
     Route: 065
     Dates: start: 20150120, end: 20150122
  42. RINOEBASTEL [Concomitant]
     Dosage: 10 MG, UNK
     Route: 048
     Dates: start: 20150208, end: 20150209
  43. DUPHALAC EASY [Concomitant]
     Dosage: 30 ML, UNK
     Route: 048
     Dates: start: 20150116, end: 20150211

REACTIONS (1)
  - Traumatic lung injury [Recovered/Resolved]

NARRATIVE: CASE EVENT DATE: 20150225
